FAERS Safety Report 12199720 (Version 1)
Quarter: 2016Q1

REPORT INFORMATION
  Report Type: Spontaneous
  Country: GB (occurrence: GB)
  Receive Date: 20160322
  Receipt Date: 20160322
  Transmission Date: 20160526
  Serious: Yes (Hospitalization, Other)
  Sender: FDA-Public Use
  Company Number: GB-ACTAVIS-2016-06167

PATIENT
  Age: 49 Year
  Sex: Female

DRUGS (6)
  1. NORETHISTERONE [Concomitant]
     Active Substance: NORETHINDRONE
     Indication: MENORRHAGIA
     Dosage: 5 MG, TID
     Route: 065
  2. MEFENAMIC ACID. [Concomitant]
     Active Substance: MEFENAMIC ACID
     Indication: MENORRHAGIA
     Dosage: 500 MG, TID
     Route: 065
  3. LEVOTHYROXINE. [Concomitant]
     Active Substance: LEVOTHYROXINE
     Indication: HYPOTHYROIDISM
     Dosage: 100 ?G, DAILY
     Route: 065
  4. FERROUS FUMARATE [Concomitant]
     Active Substance: FERROUS FUMARATE
     Indication: IRON DEFICIENCY ANAEMIA
     Dosage: UNK
     Route: 065
  5. LEVONORGESTREL. [Suspect]
     Active Substance: LEVONORGESTREL
     Indication: MENORRHAGIA
     Dosage: UNK
     Route: 015
  6. TRANEXAMIC ACID. [Concomitant]
     Active Substance: TRANEXAMIC ACID
     Indication: MENORRHAGIA
     Dosage: 1 G, TID
     Route: 065

REACTIONS (7)
  - Condition aggravated [Not Recovered/Not Resolved]
  - Abdominal pain [Not Recovered/Not Resolved]
  - Device dislocation [Unknown]
  - Menorrhagia [Not Recovered/Not Resolved]
  - Product use issue [Unknown]
  - Vaginal haemorrhage [Not Recovered/Not Resolved]
  - Device expulsion [Unknown]
